FAERS Safety Report 13676865 (Version 1)
Quarter: 2017Q2

REPORT INFORMATION
  Report Type: Spontaneous
  Country: US (occurrence: US)
  Receive Date: 20170622
  Receipt Date: 20170622
  Transmission Date: 20170830
  Serious: No
  Sender: FDA-Public Use
  Company Number: US-BAYER-2017-116210

PATIENT
  Age: 94 Year
  Sex: Male
  Weight: 79 kg

DRUGS (10)
  1. AMLODIPINE [Concomitant]
     Active Substance: AMLODIPINE BESYLATE
  2. CLOPIDOGREL BISULFATE. [Concomitant]
     Active Substance: CLOPIDOGREL BISULFATE
  3. HYDROCHLOROTHIAZIDE. [Concomitant]
     Active Substance: HYDROCHLOROTHIAZIDE
  4. TAMSULOSIN [Concomitant]
     Active Substance: TAMSULOSIN
  5. MIRALAX [Suspect]
     Active Substance: POLYETHYLENE GLYCOL 3350
     Indication: GASTROINTESTINAL DISORDER
     Dosage: 1 DOSE
     Route: 048
     Dates: start: 201705
  6. BAYER ASPIRIN [Concomitant]
     Active Substance: ASPIRIN
     Indication: PROPHYLAXIS
     Dosage: 1 DF, QD
  7. CARVEDILOL. [Concomitant]
     Active Substance: CARVEDILOL
  8. PROSTAT [Concomitant]
     Active Substance: HERBALS\SAW PALMETTO
  9. CENTRUM SILVER [Concomitant]
     Active Substance: MINERALS\VITAMINS
  10. PRAVASTATIN. [Concomitant]
     Active Substance: PRAVASTATIN

REACTIONS (1)
  - Product use issue [Unknown]
